FAERS Safety Report 7116051-2 (Version None)
Quarter: 2010Q4

REPORT INFORMATION
  Report Type: 
  Country: None (occurrence: None)
  Receive Date: 20101122
  Receipt Date: 20101111
  Transmission Date: 20110411
  Serious: Yes (Hospitalization, Other)
  Sender: FDA-Public Use
  Company Number: BR-SANOFI-AVENTIS-2010SA068900

PATIENT
  Age: 90 Year
  Sex: Female

DRUGS (1)
  1. CLOPIDOGREL BISULFATE [Suspect]
     Route: 048

REACTIONS (3)
  - BRAIN OEDEMA [None]
  - DISABILITY [None]
  - UNEVALUABLE EVENT [None]
